FAERS Safety Report 9513767 (Version 1)
Quarter: 2013Q1

REPORT INFORMATION
  Report Type: Spontaneous
  Country: US (occurrence: None)
  Receive Date: 20130305
  Receipt Date: 20130305
  Transmission Date: 20140127
  Serious: Yes (Hospitalization)
  Sender: FDA-Public Use
  Company Number: 163-21880-12043069

PATIENT
  Age: 79 Year
  Sex: Male

DRUGS (4)
  1. REVLIMID [Suspect]
     Indication: PLASMA CELL MYELOMA
     Dosage: 10 MG, X 21D/28D, PO
     Route: 048
     Dates: start: 200903, end: 201204
  2. ZOCOR (SIMVASTATIN) (UNKNOWN) [Concomitant]
  3. PROSCAR (FINASTERIDE) (UNKNOWN) [Concomitant]
  4. TRAMADOL (TRAMADOL) (UNKNOWN) [Concomitant]

REACTIONS (1)
  - Cerebrovascular accident [None]
